FAERS Safety Report 8856817 (Version 1)
Quarter: 2012Q4

REPORT INFORMATION
  Report Type: Spontaneous
  Country: US (occurrence: None)
  Receive Date: 20121023
  Receipt Date: 20121023
  Transmission Date: 20130627
  Serious: Yes (Other)
  Sender: FDA-Public Use
  Company Number: None

PATIENT
  Age: 22 Year
  Sex: Female
  Weight: 51.71 kg

DRUGS (1)
  1. CYMBALTA [Suspect]
     Indication: ANXIETY

REACTIONS (1)
  - Drug withdrawal syndrome [None]
